FAERS Safety Report 8770150 (Version 2)
Quarter: 2012Q4

REPORT INFORMATION
  Report Type: 
  Country: US (occurrence: US)
  Receive Date: 20120906
  Receipt Date: 20121010
  Transmission Date: 20130627
  Serious: Yes (Disabling, Other)
  Sender: FDA-Public Use
  Company Number: US-JNJFOC-20120815190

PATIENT
  Age: 59 Year
  Sex: Male
  Weight: 97.71 kg

DRUGS (6)
  1. XARELTO [Suspect]
     Indication: CEREBROVASCULAR ACCIDENT PROPHYLAXIS
     Route: 048
     Dates: start: 20120718, end: 20120803
  2. XARELTO [Suspect]
     Indication: ATRIAL FIBRILLATION
     Route: 048
     Dates: start: 20120718, end: 20120803
  3. METOPROLOL [Concomitant]
     Indication: ATRIAL FIBRILLATION
     Route: 048
  4. FLECAINIDE [Concomitant]
     Indication: ATRIAL FIBRILLATION
  5. CIPROFLOXACIN [Concomitant]
     Indication: PROPHYLAXIS
     Dates: start: 20120717, end: 20120717
  6. LOVENOX [Concomitant]
     Indication: ATRIAL FIBRILLATION
     Route: 058
     Dates: start: 20120718

REACTIONS (1)
  - Deep vein thrombosis [Recovered/Resolved]
